FAERS Safety Report 25761338 (Version 1)
Quarter: 2025Q3

REPORT INFORMATION
  Report Type: Spontaneous
  Country: EU (occurrence: EU)
  Receive Date: 20250904
  Receipt Date: 20250904
  Transmission Date: 20251021
  Serious: Yes (Death, Hospitalization, Other)
  Sender: PFIZER
  Company Number: None

PATIENT
  Age: 60 Year
  Sex: Male

DRUGS (10)
  1. PEMETREXED [Suspect]
     Active Substance: PEMETREXED
     Indication: Lung carcinoma cell type unspecified stage IV
     Route: 042
     Dates: start: 20250321, end: 20250321
  2. CARBOPLATIN [Suspect]
     Active Substance: CARBOPLATIN
     Indication: Lung carcinoma cell type unspecified stage IV
     Route: 042
     Dates: start: 20250321, end: 20250321
  3. PEMBROLIZUMAB [Suspect]
     Active Substance: PEMBROLIZUMAB
     Indication: Lung carcinoma cell type unspecified stage IV
     Route: 042
     Dates: start: 20250321, end: 20250321
  4. XIGDUO XR [Concomitant]
     Active Substance: DAPAGLIFLOZIN PROPANEDIOL\METFORMIN HYDROCHLORIDE
     Indication: Type 2 diabetes mellitus
     Dosage: 1 DF, 2X/DAY
     Route: 048
     Dates: start: 20241010
  5. CYANOCOBALAMIN [Concomitant]
     Active Substance: CYANOCOBALAMIN
     Indication: Chemotherapy side effect prophylaxis
     Route: 030
     Dates: start: 20250317
  6. ZOLICO [FOLIC ACID] [Concomitant]
     Indication: Chemotherapy side effect prophylaxis
     Dosage: 400 UG, DAILY
     Route: 048
     Dates: start: 20250317
  7. DEXAMETASONA ABDRUG [Concomitant]
     Indication: Chemotherapy side effect prophylaxis
     Dosage: 4 MG, 2X/DAY
     Route: 048
     Dates: start: 20250317
  8. PALEXIA [Concomitant]
     Active Substance: TAPENTADOL HYDROCHLORIDE
     Indication: Cancer pain
     Dosage: 50 MG, 2X/DAY
     Route: 048
     Dates: start: 20250225
  9. PALEXIA [Concomitant]
     Active Substance: TAPENTADOL HYDROCHLORIDE
     Indication: Cancer pain
     Dosage: 25 MG, DAILY
     Route: 048
     Dates: start: 20250317
  10. OMEPRAZOLE [Concomitant]
     Active Substance: OMEPRAZOLE
     Dosage: 40 MG, DAILY
     Route: 048
     Dates: start: 20250317

REACTIONS (3)
  - Pancytopenia [Fatal]
  - Pharyngeal inflammation [Fatal]
  - Rectal haemorrhage [Fatal]

NARRATIVE: CASE EVENT DATE: 20250402
